FAERS Safety Report 26135479 (Version 1)
Quarter: 2025Q4

REPORT INFORMATION
  Report Type: Spontaneous
  Country: US (occurrence: US)
  Receive Date: 20251209
  Receipt Date: 20251209
  Transmission Date: 20260118
  Serious: No
  Sender: NOVEN
  Company Number: US-NOVEN PHARMACEUTICALS, INC.-2025-NOV-US001580

PATIENT
  Age: 56 Year
  Sex: Female
  Weight: 68.027 kg

DRUGS (2)
  1. ESTRADIOL [Suspect]
     Active Substance: ESTRADIOL
     Indication: Artificial menopause
     Dosage: EITHER A 1.25MG OR 1.5MG PATCH, TWICE A WEEK
     Route: 062
  2. ESTROGENS [Suspect]
     Active Substance: ESTROGENS
     Indication: Artificial menopause
     Dosage: UNKNOWN
     Route: 048

REACTIONS (4)
  - Angiopathy [Recovered/Resolved]
  - Epistaxis [Recovered/Resolved]
  - Palpitations [Recovered/Resolved]
  - Therapeutic product effect increased [Recovered/Resolved]
